FAERS Safety Report 14735754 (Version 2)
Quarter: 2018Q2

REPORT INFORMATION
  Report Type: Spontaneous
  Country: IE (occurrence: IE)
  Receive Date: 20180409
  Receipt Date: 20180517
  Transmission Date: 20180711
  Serious: Yes (Other)
  Sender: FDA-Public Use
  Company Number: PHHY2018IE057386

PATIENT
  Age: 36 Year
  Sex: Female

DRUGS (9)
  1. AZILECT [Suspect]
     Active Substance: RASAGILINE MESYLATE
     Indication: PARKINSON^S DISEASE
     Dosage: 1 MG, UNK
     Route: 065
  2. SINEMET [Suspect]
     Active Substance: CARBIDOPA\LEVODOPA
     Indication: PARKINSON^S DISEASE
     Dosage: LEVODOPA 50 MG + CARBIDOPA 12.5 MG
     Route: 065
  3. BUPIVACAINE. [Suspect]
     Active Substance: BUPIVACAINE
     Indication: SPINAL ANAESTHESIA
     Dosage: 2.2 ML, UNK
     Route: 065
  4. SYMMETREL [Suspect]
     Active Substance: AMANTADINE HYDROCHLORIDE
     Indication: PARKINSON^S DISEASE
     Dosage: 100 MG, QD
     Route: 065
  5. RANITIDINE. [Suspect]
     Active Substance: RANITIDINE
     Indication: PRODUCT USED FOR UNKNOWN INDICATION
     Dosage: 150 MG, UNK
     Route: 065
  6. MORPHINE [Suspect]
     Active Substance: MORPHINE
     Indication: SPINAL ANAESTHESIA
     Dosage: 150 UG, UNK
     Route: 065
  7. MIRAPEXIN [Suspect]
     Active Substance: PRAMIPEXOLE
     Indication: PARKINSON^S DISEASE
     Dosage: 1.05 MG, QD
     Route: 065
  8. FENTANYL. [Suspect]
     Active Substance: FENTANYL
     Indication: SPINAL ANAESTHESIA
     Dosage: 25 UG, UNK
     Route: 065
  9. SODIUM CITRATE. [Suspect]
     Active Substance: SODIUM CITRATE
     Indication: PRODUCT USED FOR UNKNOWN INDICATION
     Dosage: 30 ML, UNK
     Route: 065

REACTIONS (1)
  - Maternal exposure during pregnancy [Unknown]
